FAERS Safety Report 5195272-2 (Version None)
Quarter: 2006Q4

REPORT INFORMATION
  Report Type: 
  Country: None (occurrence: None)
  Receive Date: 20061229
  Receipt Date: 20061117
  Transmission Date: 20070319
  Serious: Yes (Hospitalization)
  Sender: FDA-Public Use
  Company Number: CA-PFIZER INC-2006143497

PATIENT
  Sex: Male
  Weight: 86 kg

DRUGS (6)
  1. SU-011,248 [Suspect]
     Indication: RENAL CELL CARCINOMA STAGE UNSPECIFIED
     Route: 048
     Dates: start: 20060329, end: 20061113
  2. ACCUPRIL [Concomitant]
     Route: 048
  3. LIPITOR [Concomitant]
     Route: 048
     Dates: start: 20010101
  4. NITROGLYCERIN [Concomitant]
     Route: 061
     Dates: start: 20060426
  5. ELTROXIN [Concomitant]
     Route: 048
     Dates: start: 20061030
  6. FUCIDINE CAP [Concomitant]
     Route: 061
     Dates: start: 20061023

REACTIONS (3)
  - DRUG INTERACTION [None]
  - HEPATOCELLULAR DAMAGE [None]
  - INFLUENZA IMMUNISATION [None]
